FAERS Safety Report 12430143 (Version 13)
Quarter: 2022Q3

REPORT INFORMATION
  Report Type: Spontaneous
  Country: US (occurrence: US)
  Receive Date: 20160602
  Receipt Date: 20220901
  Transmission Date: 20221027
  Serious: Yes (Hospitalization, Disabling, Other)
  Sender: FDA-Public Use
  Company Number: US-BIOGEN-2016BI00244531

PATIENT
  Sex: Female

DRUGS (4)
  1. TYSABRI [Suspect]
     Active Substance: NATALIZUMAB
     Indication: Multiple sclerosis
     Dosage: INFUSED OVER ONE HOUR
     Route: 050
     Dates: start: 20140929
  2. TYSABRI [Suspect]
     Active Substance: NATALIZUMAB
     Route: 050
     Dates: end: 201607
  3. TYSABRI [Suspect]
     Active Substance: NATALIZUMAB
     Route: 050
     Dates: start: 201909
  4. TYSABRI [Suspect]
     Active Substance: NATALIZUMAB
     Route: 050
     Dates: start: 20140929

REACTIONS (13)
  - Bladder cancer stage IV [Recovered/Resolved]
  - Urinary tract procedural complication [Not Recovered/Not Resolved]
  - Urethral disorder [Not Recovered/Not Resolved]
  - Postoperative respiratory failure [Recovered/Resolved]
  - Musculoskeletal disorder [Recovered/Resolved]
  - Fall [Recovered/Resolved]
  - Cerebral haemorrhage [Recovered/Resolved]
  - Hallucination [Recovered/Resolved]
  - Foreign body aspiration [Recovered/Resolved]
  - Urinary tract infection [Unknown]
  - Blood potassium decreased [Recovered/Resolved]
  - Post-traumatic stress disorder [Recovered/Resolved]
  - Urinary incontinence [Not Recovered/Not Resolved]

NARRATIVE: CASE EVENT DATE: 20150101
